FAERS Safety Report 8734145 (Version 1)
Quarter: 2012Q4

REPORT INFORMATION
  Report Type: 
  Country: US (occurrence: US)
  Receive Date: 20120905
  Receipt Date: 20120905
  Transmission Date: 20130627
  Serious: No
  Sender: FDA-Public Use
  Company Number: US-ASTRAZENECA-2012SE57646

PATIENT
  Age: 62 Year
  Sex: Female
  Weight: 70.3 kg

DRUGS (3)
  1. NEXIUM [Suspect]
     Indication: GASTROOESOPHAGEAL REFLUX DISEASE
     Route: 048
     Dates: start: 201206
  2. METFORMIN [Concomitant]
     Indication: DIABETES MELLITUS
  3. ENALAPRIL [Concomitant]
     Indication: HYPERTENSION

REACTIONS (3)
  - Gastrooesophageal reflux disease [Unknown]
  - Pain [Unknown]
  - Malaise [Unknown]
